FAERS Safety Report 5477760-4 (Version None)
Quarter: 2007Q3

REPORT INFORMATION
  Report Type: 
  Country: None (occurrence: None)
  Receive Date: 20070831
  Receipt Date: 20070508
  Transmission Date: 20080115
  Serious: No
  Sender: FDA-Public Use
  Company Number: PHEH2007US03608

PATIENT
  Age: 35 Year
  Sex: Female
  Weight: 66 kg

DRUGS (5)
  1. EXJADE [Suspect]
     Indication: HAEMOSIDEROSIS
     Dosage: 1500 MG, QD, ORAL
     Route: 048
     Dates: start: 20070301, end: 20070301
  2. HYDROXYUREA (HYDROXCARBAMIDE) [Concomitant]
  3. FOLIC ACID [Concomitant]
  4. PERCOCET [Concomitant]
  5. CONTRACEPTIVES NOS (NO INGREDIENTS/SUBSTANCES) [Concomitant]

REACTIONS (4)
  - ABDOMINAL PAIN [None]
  - DIARRHOEA [None]
  - NAUSEA [None]
  - VOMITING [None]
